FAERS Safety Report 25967063 (Version 2)
Quarter: 2025Q4

REPORT INFORMATION
  Report Type: Spontaneous
  Country: US (occurrence: US)
  Receive Date: 20251028
  Receipt Date: 20251030
  Transmission Date: 20260117
  Serious: Yes (Death, Other)
  Sender: ALEXION PHARMACEUTICALS
  Company Number: US-ASTRAZENECA-202510GLO017892US

PATIENT

DRUGS (6)
  1. DURVALUMAB [Suspect]
     Active Substance: DURVALUMAB
     Route: 065
  2. CARBOPLATIN [Suspect]
     Active Substance: CARBOPLATIN
     Route: 065
  3. PACLITAXEL [Suspect]
     Active Substance: PACLITAXEL
     Dosage: UNK
     Route: 065
  4. PEMETREXED [Suspect]
     Active Substance: PEMETREXED
     Route: 065
  5. CISPLATIN [Suspect]
     Active Substance: CISPLATIN
     Route: 065
  6. ETOPOSIDE [Suspect]
     Active Substance: ETOPOSIDE
     Route: 065

REACTIONS (48)
  - Death [Fatal]
  - Pneumonia [Fatal]
  - COVID-19 [Fatal]
  - Bacteraemia [Fatal]
  - Pneumocystis jirovecii pneumonia [Fatal]
  - Pneumonia bacterial [Fatal]
  - Sepsis [Fatal]
  - Cerebrovascular accident [Fatal]
  - Hypereosinophilic syndrome [Unknown]
  - Type 1 diabetes mellitus [Unknown]
  - Myelodysplastic syndrome [Unknown]
  - Cardiac failure [Unknown]
  - Septic shock [Fatal]
  - Acute myocardial infarction [Unknown]
  - Pneumonitis [Unknown]
  - Cardiac arrest [Unknown]
  - Myocarditis [Unknown]
  - Aortic aneurysm [Unknown]
  - Vasculitis [Unknown]
  - Chronic obstructive pulmonary disease [Unknown]
  - Dyspnoea [Unknown]
  - Haemoptysis [Unknown]
  - Immune-mediated lung disease [Unknown]
  - Lipase increased [Unknown]
  - Interstitial lung disease [Unknown]
  - Pulmonary haemorrhage [Unknown]
  - Respiratory failure [Unknown]
  - Immune-mediated hepatitis [Unknown]
  - Toxic epidermal necrolysis [Unknown]
  - Fatigue [Unknown]
  - Pyrexia [Unknown]
  - Amylase increased [Unknown]
  - Road traffic accident [Unknown]
  - Fall [Unknown]
  - Radiation pneumonitis [Unknown]
  - Colitis [Unknown]
  - Pancreatic disorder [Unknown]
  - Hypothyroidism [Unknown]
  - Pancreatic disorder [Unknown]
  - Diarrhoea [Unknown]
  - Myocarditis [Unknown]
  - Rash [Unknown]
  - Hyperthyroidism [Unknown]
  - Adverse event [Unknown]
  - Colitis [Unknown]
  - Type 1 diabetes mellitus [Unknown]
  - Type 1 diabetes mellitus [Unknown]
  - Disease progression [Unknown]
